FAERS Safety Report 8814709 (Version 2)
Quarter: 2013Q3

REPORT INFORMATION
  Report Type: Spontaneous
  Country: DK (occurrence: DK)
  Receive Date: 20120928
  Receipt Date: 20130924
  Transmission Date: 20140515
  Serious: Yes (Hospitalization, Other)
  Sender: FDA-Public Use
  Company Number: DK-JNJFOC-20120809070

PATIENT
  Sex: Female

DRUGS (8)
  1. XEPLION [Suspect]
     Indication: BIPOLAR DISORDER
     Route: 030
  2. XEPLION [Suspect]
     Indication: BIPOLAR DISORDER
     Route: 030
     Dates: start: 20120720
  3. XEPLION [Suspect]
     Indication: BIPOLAR DISORDER
     Route: 030
  4. SEROQUEL [Concomitant]
     Indication: BIPOLAR DISORDER
     Route: 065
  5. SEROQUEL [Concomitant]
     Indication: BIPOLAR DISORDER
     Route: 065
  6. LITHIUM [Concomitant]
     Indication: PRODUCT USED FOR UNKNOWN INDICATION
     Route: 065
  7. LITHIUM [Concomitant]
     Indication: PRODUCT USED FOR UNKNOWN INDICATION
     Route: 065
  8. LITHIUM [Concomitant]
     Indication: PRODUCT USED FOR UNKNOWN INDICATION
     Route: 065

REACTIONS (6)
  - Hospitalisation [Unknown]
  - Vision blurred [Unknown]
  - Galactorrhoea [Unknown]
  - Blood prolactin increased [Unknown]
  - Hypermetropia [Unknown]
  - Hypomania [Unknown]
